FAERS Safety Report 9674298 (Version 1)
Quarter: 2013Q4

REPORT INFORMATION
  Report Type: Report from Study
  Country: US (occurrence: US)
  Receive Date: 20131107
  Receipt Date: 20131107
  Transmission Date: 20140711
  Serious: Yes (Hospitalization)
  Sender: FDA-Public Use
  Company Number: US-ROCHE-1293456

PATIENT
  Age: 55 Year
  Sex: Female
  Weight: 73.55 kg

DRUGS (24)
  1. AVASTIN [Suspect]
     Indication: COLON CANCER
     Route: 065
  2. LEUCOVORIN [Concomitant]
     Route: 065
  3. IRINOTECAN [Concomitant]
     Route: 065
  4. DEXAMETHASONE [Concomitant]
     Route: 042
  5. PALONOSETRON [Concomitant]
     Indication: NAUSEA
     Route: 042
  6. MISTLETOE [Concomitant]
     Indication: NEOPLASM MALIGNANT
     Dosage: TUES, THUR, SAT EOW
     Route: 058
  7. BENADRYL (UNITED STATES) [Concomitant]
     Dosage: 1 HR PRIOR TO TREATMENT TO CONSTRAST INJECTION
     Route: 048
  8. PREDNISONE [Concomitant]
     Dosage: 13H, 7 HR + 1 HR PRIOR TO TX
     Route: 048
  9. VICODIN [Concomitant]
     Dosage: 5-500MG
     Route: 065
  10. PROCHLORPERAZINE MALEATE [Concomitant]
     Indication: NAUSEA
     Dosage: EVERY 6-8 HOURS AS NEEDED
     Route: 048
  11. VITAMIN D3 [Concomitant]
     Dosage: 1000 UNITS
     Route: 048
  12. ACIDOPHILUS [Concomitant]
     Route: 048
  13. VITAMIN B12 [Concomitant]
     Dosage: 2 UNDER TONGUE QHS
     Route: 060
  14. ASTRAGALUS ROOT [Concomitant]
     Route: 065
  15. LISINOPRIL [Concomitant]
     Route: 048
  16. COLACE [Concomitant]
     Route: 065
  17. ALOXI [Concomitant]
     Dosage: PRIOR TO CHEMOTHERAPY
     Route: 041
  18. FLUOROURACIL [Concomitant]
     Route: 065
  19. FLUOROURACIL [Concomitant]
     Route: 065
  20. ATROPINE SULPHATE [Concomitant]
     Route: 042
  21. NORMAL SALINE [Concomitant]
     Route: 042
  22. Z-PAK [Concomitant]
     Indication: NASOPHARYNGITIS
     Route: 065
     Dates: start: 20110523
  23. LOMOTIL (UNITED STATES) [Concomitant]
     Indication: DIARRHOEA
     Route: 065
     Dates: start: 20110927
  24. MAALOX, BENADRYL + LIDOCAINE MOUTHWASH [Concomitant]
     Indication: STOMATITIS
     Route: 065
     Dates: start: 20110913

REACTIONS (5)
  - Oophorectomy [Unknown]
  - Fatigue [Unknown]
  - Nasopharyngitis [Unknown]
  - Stomatitis [Unknown]
  - Diarrhoea [Recovered/Resolved]
